FAERS Safety Report 10217224 (Version 3)
Quarter: 2014Q3

REPORT INFORMATION
  Report Type: Report from Study
  Country: US (occurrence: US)
  Receive Date: 20140604
  Receipt Date: 20140716
  Transmission Date: 20150326
  Serious: Yes (Hospitalization)
  Sender: FDA-Public Use
  Company Number: US-SA-2013SA109500

PATIENT
  Age: 47 Year
  Sex: Female

DRUGS (2)
  1. AUBAGIO [Suspect]
     Active Substance: TERIFLUNOMIDE
     Indication: MULTIPLE SCLEROSIS
     Dosage: TAKEN TO: ~1 WEEK AGO
     Route: 048
     Dates: end: 20140702
  2. AUBAGIO [Suspect]
     Active Substance: TERIFLUNOMIDE
     Indication: MULTIPLE SCLEROSIS
     Dosage: TAKEN TO: ~1 WEEK AGO
     Route: 048
     Dates: start: 20130401, end: 20140430

REACTIONS (2)
  - Road traffic accident [Unknown]
  - Drug dose omission [Unknown]

NARRATIVE: CASE EVENT DATE: 201402
